FAERS Safety Report 10208671 (Version 1)
Quarter: 2014Q2

REPORT INFORMATION
  Report Type: Spontaneous
  Country: US (occurrence: None)
  Receive Date: 20140529
  Receipt Date: 20140529
  Transmission Date: 20141212
  Serious: Yes (Other)
  Sender: FDA-Public Use
  Company Number: None

PATIENT
  Age: 80 Year
  Sex: Male
  Weight: 99.79 kg

DRUGS (12)
  1. HCTZ [Concomitant]
  2. LISINOPRIL [Concomitant]
  3. ASA [Concomitant]
  4. LORATIDINE [Concomitant]
  5. RIVAROXABAN 20 MG JANSSEN [Suspect]
     Indication: ATRIAL FIBRILLATION
     Dosage: 20MG QD W/ DINNER ORAL
     Route: 048
     Dates: start: 20130814, end: 20131202
  6. LORAZEPAM [Concomitant]
  7. DIAZEPAM [Concomitant]
  8. SERTRALINE [Concomitant]
  9. OMEPRAZOLE [Concomitant]
  10. SIMETHICONE [Concomitant]
  11. METOPROLOL XL [Concomitant]
  12. ATORVASTATIN [Concomitant]

REACTIONS (3)
  - Abdominal discomfort [None]
  - Anxiety [None]
  - Insomnia [None]
